FAERS Safety Report 6845763-0 (Version None)
Quarter: 2010Q3

REPORT INFORMATION
  Report Type: 
  Country: None (occurrence: None)
  Receive Date: 20100715
  Receipt Date: 20071115
  Transmission Date: 20110219
  Serious: No
  Sender: FDA-Public Use
  Company Number: US-PFIZER INC-2007070319

PATIENT
  Sex: Female
  Weight: 90.7 kg

DRUGS (2)
  1. CHANTIX [Suspect]
     Indication: SMOKING CESSATION THERAPY
     Dates: start: 20070816, end: 20070816
  2. LEXAPRO [Concomitant]

REACTIONS (6)
  - ADVERSE DRUG REACTION [None]
  - ANXIETY [None]
  - DIARRHOEA [None]
  - NAUSEA [None]
  - VERTIGO [None]
  - VOMITING [None]
